FAERS Safety Report 23384431 (Version 2)
Quarter: 2024Q1

REPORT INFORMATION
  Report Type: Spontaneous
  Country: US (occurrence: US)
  Receive Date: 20240109
  Receipt Date: 20240311
  Transmission Date: 20240409
  Serious: No
  Sender: FDA-Public Use
  Company Number: US-PFIZER INC-202300457599

PATIENT
  Age: 22 Year
  Sex: Female
  Weight: 73.94 kg

DRUGS (6)
  1. OXBRYTA [Suspect]
     Active Substance: VOXELOTOR
     Dosage: 1500 MG, 1X/DAY
     Route: 048
     Dates: start: 20230215, end: 2023
  2. OXBRYTA [Suspect]
     Active Substance: VOXELOTOR
     Dosage: 1 PILL EVERY DAY IN THE MORNING
     Route: 048
     Dates: start: 20240226, end: 202403
  3. OXBRYTA [Suspect]
     Active Substance: VOXELOTOR
     Dosage: 2 PILLS IN THE MORNING
     Route: 048
     Dates: start: 202403
  4. FERRIPROX [Concomitant]
     Active Substance: DEFERIPRONE
     Dosage: TAKE 1 PILL
  5. SIKLOS [Concomitant]
     Active Substance: HYDROXYUREA
     Dosage: 1000MG PER TABLET AND TAKES 2
  6. FAMOTIDINE [Concomitant]
     Active Substance: FAMOTIDINE
     Dosage: UNK

REACTIONS (3)
  - Gastrointestinal disorder [Recovered/Resolved]
  - Product dose omission issue [Unknown]
  - Off label use [Unknown]

NARRATIVE: CASE EVENT DATE: 20230217
